FAERS Safety Report 18879807 (Version 1)
Quarter: 2021Q1

REPORT INFORMATION
  Report Type: Spontaneous
  Country: JP (occurrence: JP)
  Receive Date: 20210211
  Receipt Date: 20210211
  Transmission Date: 20210420
  Serious: Yes (Death, Life-Threatening, Other)
  Sender: FDA-Public Use
  Company Number: JP-ACCORD-217234

PATIENT
  Age: 5 Decade
  Sex: Female
  Weight: 76.9 kg

DRUGS (7)
  1. FENTANYL. [Interacting]
     Active Substance: FENTANYL
     Indication: FRACTURE PAIN
     Dosage: DOSE RATE OF 0.6 MG/DAY
     Route: 062
  2. CELECOXIB. [Concomitant]
     Active Substance: CELECOXIB
     Dosage: STRENGTH: 200 MG
  3. SERTRALINE [Suspect]
     Active Substance: SERTRALINE HYDROCHLORIDE
  4. ESTAZOLAM. [Concomitant]
     Active Substance: ESTAZOLAM
  5. PROMETHAZINE [Concomitant]
     Active Substance: PROMETHAZINE HYDROCHLORIDE
  6. PARACETAMOL [Concomitant]
     Active Substance: ACETAMINOPHEN
  7. APRONALID [Concomitant]

REACTIONS (7)
  - Intentional overdose [Fatal]
  - Intentional product misuse [Fatal]
  - Serotonin syndrome [Not Recovered/Not Resolved]
  - Toxicity to various agents [Fatal]
  - Pulmonary oedema [Fatal]
  - Drug interaction [Unknown]
  - Pulmonary congestion [Fatal]
